FAERS Safety Report 23436804 (Version 1)
Quarter: 2024Q1

REPORT INFORMATION
  Report Type: Report from Study
  Country: US (occurrence: None)
  Receive Date: 20240124
  Receipt Date: 20240124
  Transmission Date: 20240410
  Serious: Yes (Other)
  Sender: FDA-Public Use
  Company Number: 2024A013197

PATIENT

DRUGS (1)
  1. TAGRISSO [Suspect]
     Active Substance: OSIMERTINIB
     Route: 048

REACTIONS (5)
  - Non-small cell lung cancer metastatic [Unknown]
  - Gene mutation identification test positive [Unknown]
  - Drug resistance [Unknown]
  - Metastases to central nervous system [Unknown]
  - Metastases to bone [Unknown]
